FAERS Safety Report 8202691-6 (Version None)
Quarter: 2012Q1

REPORT INFORMATION
  Report Type: 
  Country: None (occurrence: None)
  Receive Date: 20120312
  Receipt Date: 20120219
  Transmission Date: 20120608
  Serious: No
  Sender: FDA-Public Use
  Company Number: US-BAYER-2012-017340

PATIENT

DRUGS (2)
  1. RID 1-2-3 SYSTEM [Suspect]
     Route: 061
  2. RID MOUSSE [Suspect]
     Route: 061

REACTIONS (1)
  - THERAPEUTIC RESPONSE DECREASED [None]
